FAERS Safety Report 24034912 (Version 1)
Quarter: 2024Q3

REPORT INFORMATION
  Report Type: Spontaneous
  Country: EU (occurrence: EU)
  Receive Date: 20240701
  Receipt Date: 20240701
  Transmission Date: 20241016
  Serious: Yes (Hospitalization)
  Sender: OCTAPHARMA
  Company Number: None

PATIENT
  Age: 82 Year
  Sex: Male
  Weight: 75 kg

DRUGS (1)
  1. OCTAGAM IMMUNE GLOBULIN (HUMAN) [Suspect]
     Active Substance: HUMAN IMMUNOGLOBULIN G
     Indication: Lymphocytic leukaemia
     Dosage: MASKED
     Route: 042
     Dates: start: 20240410

REACTIONS (6)
  - Altered state of consciousness [Recovering/Resolving]
  - Seizure [Recovering/Resolving]
  - Labile blood pressure [Recovering/Resolving]
  - Bradycardia [Recovering/Resolving]
  - Generalised tonic-clonic seizure [Recovering/Resolving]
  - Language disorder [Recovering/Resolving]

NARRATIVE: CASE EVENT DATE: 20240410
